FAERS Safety Report 20805698 (Version 1)
Quarter: 2022Q2

REPORT INFORMATION
  Report Type: Spontaneous
  Country: IT (occurrence: IT)
  Receive Date: 20220510
  Receipt Date: 20220510
  Transmission Date: 20220721
  Serious: No
  Sender: FDA-Public Use
  Company Number: None

PATIENT
  Age: 35 Year
  Sex: Female
  Weight: 52 kg

DRUGS (4)
  1. REBLOZYL [Suspect]
     Active Substance: LUSPATERCEPT-AAMT
     Indication: Thalassaemia beta
     Route: 065
     Dates: start: 20211117, end: 20220318
  2. EXJADE 180 MG FILM-COATED TABLETS [Concomitant]
     Indication: Product used for unknown indication
     Route: 065
  3. FOLINA 5 MG CAPSULE MOLLI [Concomitant]
     Indication: Product used for unknown indication
     Route: 065
  4. EXJADE 360 MG FILM-COATED TABLETS [Concomitant]
     Indication: Product used for unknown indication
     Route: 065

REACTIONS (1)
  - Periorbital oedema [Recovering/Resolving]

NARRATIVE: CASE EVENT DATE: 20211201
